FAERS Safety Report 8263632-9 (Version None)
Quarter: 2012Q2

REPORT INFORMATION
  Report Type: 
  Country: None (occurrence: None)
  Receive Date: 20120405
  Receipt Date: 20120402
  Transmission Date: 20120825
  Serious: Yes (Other)
  Sender: FDA-Public Use
  Company Number: FI-ABBOTT-12P-055-0917920-00

PATIENT
  Sex: Female

DRUGS (1)
  1. HUMIRA [Suspect]
     Indication: MUSCULOSKELETAL PAIN

REACTIONS (1)
  - LENTIGO MALIGNA STAGE UNSPECIFIED [None]
